FAERS Safety Report 9345783 (Version 2)
Quarter: 2013Q2

REPORT INFORMATION
  Report Type: Spontaneous
  Country: US (occurrence: US)
  Receive Date: 20130613
  Receipt Date: 20130627
  Transmission Date: 20140414
  Serious: Yes (Other)
  Sender: FDA-Public Use
  Company Number: US-PFIZER INC-2013173035

PATIENT
  Age: 78 Year
  Sex: Female

DRUGS (2)
  1. SUTENT [Suspect]
     Indication: RENAL CANCER
     Dosage: 12.5 MG, 3X/DAY (37.5 MG DAILY)
     Route: 048
     Dates: start: 20130319, end: 20130606
  2. SUTENT [Suspect]
     Indication: BONE NEOPLASM

REACTIONS (2)
  - Blood blister [Unknown]
  - Off label use [Unknown]
